FAERS Safety Report 24456534 (Version 2)
Quarter: 2024Q4

REPORT INFORMATION
  Report Type: Report from Study
  Country: US (occurrence: US)
  Receive Date: 20241017
  Receipt Date: 20241018
  Transmission Date: 20250114
  Serious: No
  Sender: ROCHE
  Company Number: US-ROCHE-3513638

PATIENT
  Age: 41 Year
  Sex: Male

DRUGS (1)
  1. RITUXAN [Suspect]
     Active Substance: RITUXIMAB
     Indication: Thrombocytopenia
     Dosage: FORM STRENGTH: 10 MG/ML, DATE OF TREATMENT: 15/FEB/2024, 24/JAN/2024, 12/JAN/2024 AND 18/JAN/2024.
     Route: 065

REACTIONS (2)
  - Off label use [Unknown]
  - No adverse event [Unknown]
